FAERS Safety Report 8476475-8 (Version None)
Quarter: 2012Q2

REPORT INFORMATION
  Report Type: 
  Country: None (occurrence: None)
  Receive Date: 20120622
  Receipt Date: 20120424
  Transmission Date: 20120825
  Serious: Yes (Other)
  Sender: FDA-Public Use
  Company Number: DSA_58002_2012

PATIENT
  Age: 55 Year
  Sex: Male

DRUGS (3)
  1. LEUCOVORIN CALCIUM [Suspect]
     Indication: RECTAL CANCER
     Dosage: 200 MG/M2, INTRAVENOUS
     Route: 042
     Dates: start: 20070501
  2. FLUOROURACIL [Suspect]
     Indication: RECTAL CANCER
     Dosage: 400 MG/M2, INTRAVENOUS BOLUS;2400 MG/M2 INTRAVENOUS
     Route: 040
     Dates: start: 20070501
  3. OXALIPLATIN [Suspect]
     Indication: RECTAL CANCER
     Dosage: 85 MG/M2, DAILY, INTRAVENOUS DRIP
     Route: 041
     Dates: start: 20070501

REACTIONS (1)
  - BONE MARROW FAILURE [None]
